FAERS Safety Report 5455508-7 (Version None)
Quarter: 2007Q3

REPORT INFORMATION
  Report Type: 
  Country: None (occurrence: None)
  Receive Date: 20070914
  Receipt Date: 20070830
  Transmission Date: 20080115
  Serious: Yes (Hospitalization)
  Sender: FDA-Public Use
  Company Number: M7002-00622-SPO-US

PATIENT
  Age: 70 Year
  Sex: Male

DRUGS (3)
  1. ONTAK [Suspect]
     Indication: LYMPHADENOPATHY
     Dosage: 9 UG/KG, INTRAVENOUS
     Route: 042
     Dates: start: 20070815, end: 20070919
  2. ONTAK [Suspect]
     Indication: MYCOSIS FUNGOIDES
     Dosage: 9 UG/KG, INTRAVENOUS
     Route: 042
     Dates: start: 20070815, end: 20070919
  3. DECADRON [Concomitant]

REACTIONS (5)
  - BLOOD ALBUMIN DECREASED [None]
  - BLOOD ALKALINE PHOSPHATASE INCREASED [None]
  - PYREXIA [None]
  - RASH GENERALISED [None]
  - RASH MACULO-PAPULAR [None]
